FAERS Safety Report 12948290 (Version 1)
Quarter: 2016Q4

REPORT INFORMATION
  Report Type: Spontaneous
  Country: IT (occurrence: IT)
  Receive Date: 20161117
  Receipt Date: 20161117
  Transmission Date: 20170207
  Serious: Yes (Other)
  Sender: FDA-Public Use
  Company Number: IT-SUN PHARMACEUTICAL INDUSTRIES LTD-2016RR-127802

PATIENT
  Age: 68 Year
  Sex: Male

DRUGS (9)
  1. VORICONAZOLE. [Suspect]
     Active Substance: VORICONAZOLE
     Indication: MYCOTIC ENDOPHTHALMITIS
     Dosage: 200 MG, EVERY 12 HOURS
     Route: 048
  2. CODEINE [Suspect]
     Active Substance: CODEINE
     Indication: PAIN
     Dosage: 300 MG, DAILY
     Route: 065
  3. AMPHOTERICIN B. [Concomitant]
     Active Substance: AMPHOTERICIN B
     Indication: ANTIFUNGAL TREATMENT
     Route: 047
  4. VORICONAZOLE. [Suspect]
     Active Substance: VORICONAZOLE
     Indication: MYCOTIC ENDOPHTHALMITIS
     Dosage: 6 MG/KG, BID, EVERY 12 HOURS FOR THE FIRST DAY THEN 4 MG/KG, BID, EVERY 12 HOURS FOR 10 DAYS
     Route: 042
  5. PARACETAMOL [Suspect]
     Active Substance: ACETAMINOPHEN
     Indication: PAIN
     Dosage: 500 MG/ 30MG DAILY
     Route: 065
  6. PREDNISONE. [Concomitant]
     Active Substance: PREDNISONE
     Indication: INFLAMMATION
     Dosage: 25 MG, BID, FOR TWO WEEKS
     Route: 048
  7. FLUCONAZOLE. [Concomitant]
     Active Substance: FLUCONAZOLE
     Indication: ANTIFUNGAL TREATMENT
     Dosage: 400 MG, DAILY
     Route: 065
  8. GABAPENTIN. [Suspect]
     Active Substance: GABAPENTIN
     Indication: PAIN
     Dosage: 300 MG, DAILY
     Route: 065
  9. DICLOFENAC [Concomitant]
     Active Substance: DICLOFENAC
     Indication: PAIN
     Dosage: UNK
     Route: 065

REACTIONS (7)
  - Posture abnormal [Recovering/Resolving]
  - Hepatotoxicity [Unknown]
  - Balance disorder [Recovering/Resolving]
  - Hallucination, visual [Recovering/Resolving]
  - Apraxia [Recovering/Resolving]
  - Neurotoxicity [Recovering/Resolving]
  - Ataxia [Recovering/Resolving]
